FAERS Safety Report 19475929 (Version 2)
Quarter: 2022Q1

REPORT INFORMATION
  Report Type: Report from Study
  Country: US (occurrence: US)
  Receive Date: 20210630
  Receipt Date: 20220201
  Transmission Date: 20220423
  Serious: Yes (Hospitalization)
  Sender: FDA-Public Use
  Company Number: US-TEVA-2021-US-1927139

PATIENT
  Age: 16 Year
  Sex: Male
  Weight: 91.63 kg

DRUGS (5)
  1. CLOZAPINE [Suspect]
     Active Substance: CLOZAPINE
     Indication: Schizoaffective disorder bipolar type
     Dosage: 600 MILLIGRAM DAILY;
     Route: 065
  2. CLOZAPINE [Suspect]
     Active Substance: CLOZAPINE
     Indication: Aggression
  3. LITHIUM [Concomitant]
     Active Substance: LITHIUM
  4. DEPAKOTE [Concomitant]
     Active Substance: DIVALPROEX SODIUM
  5. OLANZAPINE [Concomitant]
     Active Substance: OLANZAPINE

REACTIONS (12)
  - Irritability [Unknown]
  - Mood swings [Unknown]
  - Agitation [Unknown]
  - Tangentiality [Unknown]
  - Insomnia [Unknown]
  - Impulsive behaviour [Unknown]
  - Intrusive thoughts [Unknown]
  - Paranoia [Unknown]
  - Abnormal behaviour [Unknown]
  - Withdrawal syndrome [Unknown]
  - Off label use [Unknown]
  - Product dose omission issue [Unknown]

NARRATIVE: CASE EVENT DATE: 20210601
